FAERS Safety Report 9678298 (Version 2)
Quarter: 2013Q4

REPORT INFORMATION
  Report Type: Spontaneous
  Country: US (occurrence: US)
  Receive Date: 20131108
  Receipt Date: 20131111
  Transmission Date: 20140711
  Serious: Yes (Hospitalization, Other)
  Sender: FDA-Public Use
  Company Number: US-EXELIXIS-CABO-13003565

PATIENT
  Age: 45 Year
  Sex: Female
  Weight: 44.5 kg

DRUGS (6)
  1. COMETRIQ [Suspect]
     Indication: THYROID CANCER
     Dosage: 140 MG, QD
     Route: 048
     Dates: start: 20131016, end: 20131021
  2. CALCIUM [Concomitant]
  3. LEVOTHYROXINE [Concomitant]
  4. AMLODIPINE [Concomitant]
  5. MAGNESIUM [Concomitant]
  6. CALCITRIOL [Concomitant]

REACTIONS (2)
  - Vocal cord paralysis [Recovered/Resolved]
  - Hypocalcaemia [Recovered/Resolved]
